FAERS Safety Report 11863034 (Version 1)
Quarter: 2015Q4

REPORT INFORMATION
  Report Type: Spontaneous
  Country: US (occurrence: None)
  Receive Date: 20151222
  Receipt Date: 20151222
  Transmission Date: 20160305
  Serious: Yes (Other)
  Sender: FDA-Public Use
  Company Number: None

PATIENT
  Age: 68 Year
  Sex: Female
  Weight: 113.4 kg

DRUGS (15)
  1. GADOLINIUM [Suspect]
     Active Substance: GADOLINIUM
     Indication: CEREBROSPINAL FLUID LEAKAGE
     Dosage: ?   DURING MRI  INTO A VEIN
     Route: 042
     Dates: start: 20151215
  2. MORPHINE SULFATE IR TABLET [Concomitant]
     Active Substance: MORPHINE SULFATE
  3. ESTRADIOL. [Concomitant]
     Active Substance: ESTRADIOL
  4. LEVOTHYROXINE. [Concomitant]
     Active Substance: LEVOTHYROXINE
  5. LORATIDINE [Concomitant]
     Active Substance: LORATADINE
  6. GUAIFENESIN. [Concomitant]
     Active Substance: GUAIFENESIN
  7. GADOLINIUM [Suspect]
     Active Substance: GADOLINIUM
     Indication: NUCLEAR MAGNETIC RESONANCE IMAGING
     Dosage: ?   DURING MRI  INTO A VEIN
     Route: 042
     Dates: start: 20151215
  8. PAROXETINE [Concomitant]
     Active Substance: PAROXETINE\PAROXETINE HYDROCHLORIDE
  9. SUCRALFATE. [Concomitant]
     Active Substance: SUCRALFATE
  10. GABAPENTIN. [Concomitant]
     Active Substance: GABAPENTIN
  11. LISINOPRIL AND HYDROCHLOROTHIAZIDE [Concomitant]
     Active Substance: HYDROCHLOROTHIAZIDE\LISINOPRIL
  12. MORPHINE SULFATE ER [Concomitant]
     Active Substance: MORPHINE SULFATE
  13. CLONIDINE. [Concomitant]
     Active Substance: CLONIDINE
  14. VITAMIN [Concomitant]
     Active Substance: VITAMINS
  15. CYCLOBENZAPRINE [Concomitant]
     Active Substance: CYCLOBENZAPRINE

REACTIONS (8)
  - Mass [None]
  - Contrast media reaction [None]
  - Feeling hot [None]
  - Urticaria [None]
  - Cellulitis [None]
  - Pain [None]
  - Joint swelling [None]
  - Pruritus [None]

NARRATIVE: CASE EVENT DATE: 20151215
